FAERS Safety Report 9003907 (Version 1)
Quarter: 2013Q1

REPORT INFORMATION
  Report Type: Spontaneous
  Country: US (occurrence: US)
  Receive Date: 20130108
  Receipt Date: 20130108
  Transmission Date: 20140127
  Serious: No
  Sender: FDA-Public Use
  Company Number: US-ASTRAZENECA-2013SE00376

PATIENT
  Age: 48 Year
  Sex: Female

DRUGS (2)
  1. PRILOSEC [Suspect]
     Indication: GASTROOESOPHAGEAL REFLUX DISEASE
     Route: 048
  2. PRILOSEC OTC [Suspect]
     Indication: GASTROOESOPHAGEAL REFLUX DISEASE
     Route: 048

REACTIONS (11)
  - Anxiety [Unknown]
  - Chest pain [Unknown]
  - Chills [Unknown]
  - Decreased appetite [Unknown]
  - Hyperchlorhydria [Unknown]
  - Hypertension [Unknown]
  - Oropharyngeal pain [Unknown]
  - Palpitations [Unknown]
  - Weight decreased [Unknown]
  - Dyspepsia [Unknown]
  - Stomatitis [Unknown]
